FAERS Safety Report 8103622-X (Version None)
Quarter: 2012Q1

REPORT INFORMATION
  Report Type: 
  Country: None (occurrence: None)
  Receive Date: 20120201
  Receipt Date: 20120123
  Transmission Date: 20120608
  Serious: Yes (Hospitalization)
  Sender: FDA-Public Use
  Company Number: FR-PFIZER INC-2009180083

PATIENT
  Age: 66 Year
  Sex: Male

DRUGS (15)
  1. RAMIPRIL [Suspect]
     Route: 048
     Dates: start: 20080517, end: 20080529
  2. STALEVO 100 [Concomitant]
  3. PANTOPRAZOLE SODIUM [Suspect]
     Indication: PROPHYLAXIS
     Dosage: 1 DF, 1X/DAY
     Route: 048
     Dates: start: 20080515, end: 20080529
  4. GENTAMICIN [Concomitant]
     Dates: start: 20080502
  5. POTASSIUM CHLORIDE [Concomitant]
  6. RIFADIN [Suspect]
     Indication: ENDOCARDITIS
     Route: 048
     Dates: start: 20080515, end: 20080527
  7. SINEMET [Concomitant]
  8. ATORVASTATIN [Suspect]
     Indication: HYPERCHOLESTEROLAEMIA
     Route: 048
     Dates: end: 20080529
  9. BISOPROLOL [Suspect]
     Indication: CARDIAC FAILURE
     Route: 048
     Dates: start: 20080506, end: 20080529
  10. LEXOMIL [Suspect]
     Indication: ANXIETY
     Dosage: 0.5 DF, 2X/DAY
     Route: 048
     Dates: start: 20080517, end: 20080529
  11. ASPIRIN [Concomitant]
     Dates: start: 20080515
  12. ATARAX [Suspect]
     Indication: ANXIETY
     Route: 048
     Dates: start: 20080310, end: 20080529
  13. LASIX [Concomitant]
     Dates: start: 20080515
  14. VANCOCIN HYDROCHLORIDE [Suspect]
     Indication: ENDOCARDITIS
     Route: 042
     Dates: start: 20080502, end: 20080529
  15. LOVENOX [Concomitant]

REACTIONS (5)
  - DRUG RASH WITH EOSINOPHILIA AND SYSTEMIC SYMPTOMS [None]
  - CHOLESTASIS [None]
  - CYTOLYTIC HEPATITIS [None]
  - RENAL FAILURE ACUTE [None]
  - ANAEMIA [None]
